FAERS Safety Report 12976677 (Version 1)
Quarter: 2016Q4

REPORT INFORMATION
  Report Type: Spontaneous
  Country: US (occurrence: US)
  Receive Date: 20161128
  Receipt Date: 20161128
  Transmission Date: 20170207
  Serious: No
  Sender: FDA-Public Use
  Company Number: US-TAIHO ONCOLOGY INC-EU-2016-02970

PATIENT
  Age: 77 Year
  Sex: Female
  Weight: 44.04 kg

DRUGS (2)
  1. LONSURF [Suspect]
     Active Substance: TIPIRACIL HYDROCHLORIDE\TRIFLURIDINE
     Indication: COLON CANCER STAGE IV
     Dosage: CYCLE 2 STARTED ON 01AUG2016
     Route: 048
     Dates: start: 20160704, end: 20160812
  2. METOPROLOL. [Concomitant]
     Active Substance: METOPROLOL
     Indication: HEART RATE INCREASED

REACTIONS (4)
  - Fluid retention [Unknown]
  - Carcinoembryonic antigen increased [Unknown]
  - Drug ineffective [Unknown]
  - Neuropathy peripheral [Unknown]

NARRATIVE: CASE EVENT DATE: 2016
